FAERS Safety Report 23171083 (Version 2)
Quarter: 2024Q1

REPORT INFORMATION
  Report Type: Spontaneous
  Country: PT (occurrence: PT)
  Receive Date: 20231110
  Receipt Date: 20240229
  Transmission Date: 20240410
  Serious: Yes (Other)
  Sender: FDA-Public Use
  Company Number: PT-JNJFOC-20231010044

PATIENT
  Age: 32 Year
  Sex: Female
  Weight: 55 kg

DRUGS (4)
  1. STELARA [Suspect]
     Active Substance: USTEKINUMAB
     Indication: Crohn^s disease
     Dosage: PREVIOUS DRUG ADMINISTRATION: 06-JUN-2023.
     Route: 058
  2. STELARA [Suspect]
     Active Substance: USTEKINUMAB
     Indication: Psoriasis
  3. IRON [Concomitant]
     Active Substance: IRON
     Route: 048
     Dates: start: 20230621, end: 20230728
  4. NATALBEN SUPRA [Concomitant]
     Active Substance: MINERALS\OMEGA-3 FATTY ACIDS\VITAMINS
     Route: 065

REACTIONS (3)
  - Subchorionic haematoma [Unknown]
  - Exposure during pregnancy [Recovered/Resolved]
  - Off label use [Unknown]
